FAERS Safety Report 7104579-0 (Version None)
Quarter: 2010Q4

REPORT INFORMATION
  Report Type: 
  Country: None (occurrence: None)
  Receive Date: 20101116
  Receipt Date: 20101111
  Transmission Date: 20110411
  Serious: No
  Sender: FDA-Public Use
  Company Number: US-BIOGENIDEC-2010BI039611

PATIENT
  Age: 51 Year
  Sex: Female

DRUGS (5)
  1. AVONEX [Suspect]
     Indication: MULTIPLE SCLEROSIS
     Route: 030
     Dates: start: 20100921
  2. AVONEX [Suspect]
     Route: 030
     Dates: start: 20100831
  3. AVONEX [Suspect]
     Route: 030
     Dates: start: 20100907
  4. AVONEX [Suspect]
     Route: 030
     Dates: start: 20100914
  5. FLEXERIL [Concomitant]
     Indication: MYALGIA
     Route: 048

REACTIONS (7)
  - ALOPECIA [None]
  - ERYTHEMA [None]
  - HOT FLUSH [None]
  - INFLUENZA [None]
  - INFLUENZA LIKE ILLNESS [None]
  - INJECTION SITE WARMTH [None]
  - SWELLING FACE [None]
